FAERS Safety Report 6103396-8 (Version None)
Quarter: 2009Q1

REPORT INFORMATION
  Report Type: 
  Country: None (occurrence: None)
  Receive Date: 20090305
  Receipt Date: 20090226
  Transmission Date: 20090719
  Serious: Yes (Death, Hospitalization)
  Sender: FDA-Public Use
  Company Number: JP-BAYER-200910273BYL

PATIENT
  Age: 52 Year
  Sex: Male
  Weight: 60 kg

DRUGS (4)
  1. NEXAVAR [Suspect]
     Indication: RENAL CELL CARCINOMA STAGE IV
     Dosage: TOTAL DAILY DOSE: 800 MG  UNIT DOSE: 200 MG
     Route: 048
     Dates: start: 20081013, end: 20081227
  2. NEXAVAR [Suspect]
     Route: 048
     Dates: end: 20090108
  3. SUMIFERON [Concomitant]
     Route: 058
     Dates: start: 20081006, end: 20081107
  4. MORPHINE [Concomitant]
     Indication: DRUG USE FOR UNKNOWN INDICATION
     Route: 065

REACTIONS (5)
  - DEATH [None]
  - HAEMOPTYSIS [None]
  - HAEMOTHORAX [None]
  - HEPATIC ENZYME INCREASED [None]
  - RASH [None]
